FAERS Safety Report 22089177 (Version 1)
Quarter: 2023Q1

REPORT INFORMATION
  Report Type: Spontaneous
  Country: US (occurrence: None)
  Receive Date: 20230309
  Receipt Date: 20230309
  Transmission Date: 20230417
  Serious: Yes (Hospitalization)
  Sender: FDA-Public Use
  Company Number: None

PATIENT
  Age: 18 Year
  Sex: Male

DRUGS (12)
  1. PULMOZYME [Suspect]
     Active Substance: DORNASE ALFA
     Indication: Cystic fibrosis
     Dosage: OTHER QUANTITY : 2.5 MG/2.5ML;?FREQUENCY : TWICE A DAY;?
     Route: 055
     Dates: start: 20190608
  2. ALBUTEROL [Concomitant]
     Active Substance: ALBUTEROL
  3. AZITHROMYCIN INJ [Concomitant]
  4. AZITHROMYCIN TAB [Concomitant]
  5. CALTRATE TAB [Concomitant]
  6. GVOKE PFS INJ [Concomitant]
  7. PARI LC PLUS NEB SET [Concomitant]
  8. PULMICORT INH [Concomitant]
  9. SODIUM CHLOR NEB [Concomitant]
  10. TOBI NEB [Concomitant]
  11. VITAMIN D CAP [Concomitant]
  12. ZENPEP [Concomitant]
     Active Substance: PANCRELIPASE AMYLASE\PANCRELIPASE LIPASE\PANCRELIPASE PROTEASE

REACTIONS (1)
  - Unevaluable event [None]

NARRATIVE: CASE EVENT DATE: 20230223
